FAERS Safety Report 11817254 (Version 3)
Quarter: 2021Q2

REPORT INFORMATION
  Report Type: Spontaneous
  Country: US (occurrence: US)
  Receive Date: 20151210
  Receipt Date: 20210528
  Transmission Date: 20210716
  Serious: Yes (Other)
  Sender: FDA-Public Use
  Company Number: US-JNJFOC-20151100783

PATIENT
  Age: 16 Year
  Sex: Male

DRUGS (2)
  1. RISPERDAL [Suspect]
     Active Substance: RISPERIDONE
     Dosage: DOSE: 0.5 ? 2MG
     Route: 048
     Dates: end: 200605
  2. RISPERDAL [Suspect]
     Active Substance: RISPERIDONE
     Indication: TIC
     Dosage: DOSE: 0.5 ? 2MG
     Route: 048
     Dates: start: 20041021, end: 2005

REACTIONS (5)
  - Gynaecomastia [Recovered/Resolved]
  - Off label use [Unknown]
  - Abnormal weight gain [Unknown]
  - Product use in unapproved indication [Unknown]
  - Emotional disorder [Unknown]

NARRATIVE: CASE EVENT DATE: 200410
